FAERS Safety Report 9248576 (Version 1)
Quarter: 2013Q1

REPORT INFORMATION
  Report Type: Spontaneous
  Country: US (occurrence: None)
  Receive Date: 20130305
  Receipt Date: 20130305
  Transmission Date: 20140127
  Serious: Yes (Other)
  Sender: FDA-Public Use
  Company Number: 163-21880-12053706

PATIENT
  Age: 78 Year
  Sex: Male

DRUGS (9)
  1. REVLIMID (LENALIDOMIDE) (CAPSULES) [Suspect]
     Indication: PLASMA CELL MYELOMA
     Route: 048
     Dates: start: 20120516
  2. ASPIRIN(ACETYLSALICYLIC ACID) (UNKNOWN) [Concomitant]
  3. AMLODIPINE BESYLATE(AMLODIPINE BESILATE)(UNKNOWN) [Concomitant]
  4. NEURONTIN(GABAPENTIN)(UNKNOWN) [Concomitant]
  5. LISINOPRIL(LISINOPRIL)(UNKNOWN) [Concomitant]
  6. TOPROL XL(METOPROLOL SUCCINATE)(UNKNOWN) [Concomitant]
  7. PRAVACHOL(PRAVASTATIN SODIUM)(UNKNOWN) [Concomitant]
  8. NARFARIN SODIUM(WARFARIN SODIUM)(UNKNOWN) [Concomitant]
  9. MOBIC(MELOXICAM)(UNKNOWN) [Concomitant]

REACTIONS (1)
  - Sepsis [None]
